FAERS Safety Report 4953660-0 (Version None)
Quarter: 2006Q1

REPORT INFORMATION
  Report Type: 
  Country: None (occurrence: None)
  Receive Date: 20060324
  Receipt Date: 20060322
  Transmission Date: 20060701
  Serious: Yes (Other)
  Sender: FDA-Public Use
  Company Number: CA-MERCK-0603CAN00135

PATIENT
  Sex: Male

DRUGS (1)
  1. VIOXX [Suspect]
     Indication: ARTHRITIS
     Route: 048
     Dates: start: 20000101, end: 20040301

REACTIONS (3)
  - ANHEDONIA [None]
  - CEREBROVASCULAR ACCIDENT [None]
  - PAIN [None]
